FAERS Safety Report 9719830 (Version 3)
Quarter: 2014Q2

REPORT INFORMATION
  Report Type: Spontaneous
  Country: JP (occurrence: JP)
  Receive Date: 20131128
  Receipt Date: 20140423
  Transmission Date: 20141212
  Serious: Yes (Disabling)
  Sender: FDA-Public Use
  Company Number: JP-ASTRAZENECA-2013SE86273

PATIENT
  Age: 72 Year
  Sex: Female
  Weight: 49 kg

DRUGS (15)
  1. SYMBICORT TURBUHALER [Suspect]
     Indication: ASTHMA
     Dosage: 30 DOSES, UNKNOWN, 5 YEARS AGO
     Route: 055
     Dates: start: 201304
  2. KIPRES [Concomitant]
     Indication: ASTHMA
     Route: 048
  3. THYRADIN [Concomitant]
     Indication: HYPOTHYROIDISM
     Route: 048
  4. DIOVAN [Concomitant]
     Indication: HYPERTENSION
     Route: 048
  5. LIPOZART [Concomitant]
     Indication: DYSLIPIDAEMIA
     Route: 048
  6. HOKUNALIN:TAPE [Concomitant]
     Indication: ASTHMA
     Route: 062
  7. KLARICID [Concomitant]
     Route: 048
  8. MUCODYNE [Concomitant]
     Route: 048
  9. AMBROXOL HYDROCHLORIDE [Concomitant]
     Route: 048
  10. MEDICON [Concomitant]
     Route: 048
  11. KETAS [Concomitant]
     Route: 048
  12. LACB R [Concomitant]
     Route: 048
  13. HACHIAZULE [Concomitant]
     Dosage: TWO TIMES A DAY
     Route: 048
  14. ADRENAL HORMONE PREPARATIONS [Concomitant]
     Indication: ASTHMA
     Route: 041
     Dates: start: 201306
  15. PREDONINE [Concomitant]
     Indication: ASTHMA
     Route: 048
     Dates: start: 201212

REACTIONS (1)
  - Pulmonary tuberculosis [Recovered/Resolved with Sequelae]
